FAERS Safety Report 5986980-1 (Version None)
Quarter: 2008Q4

REPORT INFORMATION
  Report Type: 
  Country: None (occurrence: None)
  Receive Date: 20081126
  Receipt Date: 20080319
  Transmission Date: 20090506
  Serious: Yes (Hospitalization)
  Sender: FDA-Public Use
  Company Number: 2008BH002573

PATIENT
  Age: 68 Year
  Sex: Male

DRUGS (16)
  1. DIANEAL [Suspect]
     Indication: PERITONEAL DIALYSIS
     Dosage: 8 L; IP
     Route: 033
     Dates: start: 20071211, end: 20080312
  2. DIANEAL PD-2 W/ DEXTROSE 1.5% [Suspect]
     Indication: PERITONEAL DIALYSIS
     Dosage: IP
     Route: 033
     Dates: start: 20071211, end: 20080312
  3. ALLEGRA [Concomitant]
  4. ASPIRIN [Concomitant]
  5. CLONIDINE [Concomitant]
  6. LANTUS [Concomitant]
  7. METOPROLOL [Concomitant]
  8. TRICOR [Concomitant]
  9. AMBIEN [Concomitant]
  10. BENADRYL [Concomitant]
  11. DIOVAN [Concomitant]
  12. HYDROXYZINE [Concomitant]
  13. LIPITOR [Concomitant]
  14. PLENDIL [Concomitant]
  15. TUMS [Concomitant]
  16. NOVOLOG [Concomitant]

REACTIONS (3)
  - PERITONEAL DIALYSIS COMPLICATION [None]
  - PERITONEAL MEMBRANE FAILURE [None]
  - PERITONITIS BACTERIAL [None]
